FAERS Safety Report 5829673-3 (Version None)
Quarter: 2008Q3

REPORT INFORMATION
  Report Type: 
  Country: None (occurrence: None)
  Receive Date: 20080801
  Receipt Date: 20080723
  Transmission Date: 20090109
  Serious: Yes (Death, Hospitalization)
  Sender: FDA-Public Use
  Company Number: US-RANBAXY-2008RR-16627

PATIENT

DRUGS (1)
  1. ACETAMINOPHEN [Suspect]

REACTIONS (1)
  - HEPATOCELLULAR INJURY [None]
